FAERS Safety Report 8157642-X (Version None)
Quarter: 2012Q1

REPORT INFORMATION
  Report Type: 
  Country: None (occurrence: None)
  Receive Date: 20120222
  Receipt Date: 20120220
  Transmission Date: 20120608
  Serious: Yes (Hospitalization, Other)
  Sender: FDA-Public Use
  Company Number: CA-AMGEN-CANSP2012011428

PATIENT
  Age: 70 Year
  Weight: 42.63 kg

DRUGS (4)
  1. TOLBUTAMIDE [Concomitant]
  2. METFORMIN HCL [Concomitant]
     Dosage: 500 MG, QD
  3. PROLIA [Suspect]
     Indication: OSTEOPOROSIS
     Dosage: 60 MG, Q6MO
     Route: 058
     Dates: start: 20110601
  4. ASPIRIN [Concomitant]

REACTIONS (5)
  - ASTHENIA [None]
  - DYSPHONIA [None]
  - THYROID CANCER [None]
  - POST PROCEDURAL COMPLICATION [None]
  - DYSPHAGIA [None]
